FAERS Safety Report 11098716 (Version 2)
Quarter: 2015Q2

REPORT INFORMATION
  Report Type: Spontaneous
  Country: CA (occurrence: CA)
  Receive Date: 20150507
  Receipt Date: 20150514
  Transmission Date: 20150821
  Serious: Yes (Life-Threatening)
  Sender: FDA-Public Use
  Company Number: PHHY2015CA053315

PATIENT
  Sex: Female

DRUGS (1)
  1. ULTIBRO BREEZHALER [Suspect]
     Active Substance: GLYCOPYRRONIUM\INDACATEROL
     Indication: CHRONIC OBSTRUCTIVE PULMONARY DISEASE
     Dosage: 4 DF, QD (4 INHALATION DAILY)
     Route: 055
     Dates: start: 20150423, end: 20150427

REACTIONS (21)
  - Oropharyngeal swelling [Unknown]
  - Choking [Unknown]
  - Eye oedema [Unknown]
  - Anaphylactoid reaction [Unknown]
  - Tongue spasm [Unknown]
  - Tongue oedema [Unknown]
  - Eye swelling [Unknown]
  - Eyelid oedema [Unknown]
  - Skin swelling [Unknown]
  - Oropharyngeal spasm [Unknown]
  - Throat tightness [Unknown]
  - Dyspnoea [Unknown]
  - Allergic oedema [Unknown]
  - Skin oedema [Unknown]
  - Lip swelling [Unknown]
  - Swollen tongue [Unknown]
  - Anaphylactic reaction [Recovered/Resolved]
  - Type I hypersensitivity [Unknown]
  - Upper airway obstruction [Unknown]
  - Respiratory distress [Unknown]
  - Respiratory failure [Unknown]
